FAERS Safety Report 16312907 (Version 2)
Quarter: 2019Q2

REPORT INFORMATION
  Report Type: Report from Study
  Country: DE (occurrence: DE)
  Receive Date: 20190515
  Receipt Date: 20190523
  Transmission Date: 20190711
  Serious: Yes (Hospitalization)
  Sender: FDA-Public Use
  Company Number: DE-ROCHE-2307088

PATIENT
  Age: 70 Year
  Sex: Female
  Weight: 57 kg

DRUGS (23)
  1. ARIXTRA [Concomitant]
     Active Substance: FONDAPARINUX SODIUM
     Route: 058
     Dates: start: 20190417, end: 20190418
  2. ZOPICLON [Concomitant]
     Active Substance: ZOPICLONE
     Route: 048
     Dates: start: 20190410
  3. TRYASOL [Concomitant]
     Route: 048
     Dates: start: 20190322, end: 20190322
  4. AMLODIPINE [Concomitant]
     Active Substance: AMLODIPINE BESYLATE
  5. HEPARIN [Concomitant]
     Active Substance: HEPARIN SODIUM
     Dosage: 10000 IE
     Route: 042
     Dates: start: 20190322, end: 20190331
  6. TOREM [TORASEMIDE] [Concomitant]
     Active Substance: TORSEMIDE
     Route: 048
     Dates: start: 20190304
  7. SALOFALK [MESALAZINE] [Concomitant]
     Active Substance: MESALAMINE
     Route: 048
     Dates: start: 20180815, end: 20190403
  8. LEVOFLOXACIN. [Concomitant]
     Active Substance: LEVOFLOXACIN
     Route: 048
     Dates: start: 20190322, end: 20190401
  9. ARIXTRA [Concomitant]
     Active Substance: FONDAPARINUX SODIUM
     Route: 042
     Dates: start: 20190322, end: 20190322
  10. MOVICOL [Concomitant]
     Active Substance: POLYETHYLENE GLYCOL 3350\POTASSIUM CHLORIDE\SODIUM BICARBONATE\SODIUM CHLORIDE
     Route: 048
     Dates: start: 20190324
  11. ALLOPURINOL. [Concomitant]
     Active Substance: ALLOPURINOL
     Route: 048
     Dates: start: 20190326
  12. METAMIZOLE [Concomitant]
     Active Substance: METAMIZOLE
     Route: 048
     Dates: start: 20190330
  13. OBINUTUZUMAB. [Suspect]
     Active Substance: OBINUTUZUMAB
     Indication: CHRONIC LYMPHOCYTIC LEUKAEMIA
     Dosage: LAST DOSE RECEIVED ON: 17/APR/2019
     Route: 042
     Dates: start: 20190319
  14. METOPROLOL. [Concomitant]
     Active Substance: METOPROLOL
     Route: 048
     Dates: start: 20190329
  15. METOPROLOL. [Concomitant]
     Active Substance: METOPROLOL
     Route: 065
     Dates: start: 20190326, end: 20190402
  16. ERYTHROCYTES [Concomitant]
     Active Substance: HUMAN RED BLOOD CELL
     Route: 042
     Dates: start: 20190329, end: 20190329
  17. METOPROLOL. [Concomitant]
     Active Substance: METOPROLOL
     Route: 048
     Dates: start: 20190403
  18. COTRIM [Concomitant]
     Active Substance: SULFAMETHOXAZOLE\TRIMETHOPRIM
     Route: 065
     Dates: start: 20190304
  19. ERYTHROCYTES [Concomitant]
     Active Substance: HUMAN RED BLOOD CELL
     Route: 042
     Dates: start: 20190325, end: 20190325
  20. IDELALISIB [Suspect]
     Active Substance: IDELALISIB
     Indication: CHRONIC LYMPHOCYTIC LEUKAEMIA
     Dosage: LAST DOSE RECEIVED ON: 17/APR/2019
     Route: 048
     Dates: start: 20190417
  21. COTRIMOXAZOLE [Concomitant]
     Active Substance: SULFAMETHOXAZOLE\TRIMETHOPRIM
     Route: 048
     Dates: start: 20190403
  22. PANTOPRAZOLE [Concomitant]
     Active Substance: PANTOPRAZOLE
     Route: 048
     Dates: start: 20190328
  23. VENETOCLAX. [Concomitant]
     Active Substance: VENETOCLAX
     Route: 048
     Dates: start: 20180531, end: 20190315

REACTIONS (1)
  - Hyponatraemia [Recovered/Resolved]

NARRATIVE: CASE EVENT DATE: 20190417
